FAERS Safety Report 9262084 (Version 2)
Quarter: 2013Q2

REPORT INFORMATION
  Report Type: Spontaneous
  Country: US (occurrence: US)
  Receive Date: 20130430
  Receipt Date: 20130430
  Transmission Date: 20140414
  Serious: Yes (Hospitalization, Other)
  Sender: FDA-Public Use
  Company Number: US-009507513-1301USA001879

PATIENT
  Age: 83 Year
  Sex: Female

DRUGS (5)
  1. SINGULAIR [Suspect]
     Indication: ASTHMA
     Dosage: UNK
     Route: 048
  2. FLECAINE [Suspect]
     Indication: ARRHYTHMIA
     Dosage: UNK
     Route: 048
  3. INSULIN HUMAN, ISOPHANE [Suspect]
     Indication: TYPE 1 DIABETES MELLITUS
     Dosage: UNK
  4. PLAVIX [Suspect]
     Indication: ARTERITIS
     Dosage: UNK
     Route: 048
  5. ZANIDIP [Suspect]
     Indication: ESSENTIAL HYPERTENSION
     Dosage: UNK
     Route: 048

REACTIONS (8)
  - Wound [Unknown]
  - Ventricular extrasystoles [Unknown]
  - Skin injury [Unknown]
  - Malaise [Unknown]
  - Loss of consciousness [Unknown]
  - White matter lesion [Unknown]
  - Hypoglycaemia [Unknown]
  - Orthostatic hypotension [Unknown]
